FAERS Safety Report 6666811-7 (Version None)
Quarter: 2010Q2

REPORT INFORMATION
  Report Type: 
  Country: None (occurrence: None)
  Receive Date: 20100405
  Receipt Date: 20100324
  Transmission Date: 20101027
  Serious: Yes (Other)
  Sender: FDA-Public Use
  Company Number: US-JNJFOC-20100307592

PATIENT
  Sex: Female
  Weight: 90.72 kg

DRUGS (12)
  1. TOPAMAX [Suspect]
     Indication: MIGRAINE PROPHYLAXIS
     Route: 048
  2. TOPIRAMATE(UNSPECIFIED) [Suspect]
     Indication: MIGRAINE PROPHYLAXIS
     Route: 048
  3. DEPAKOTE [Concomitant]
     Indication: DEPRESSION
     Dosage: IN AM
     Route: 048
  4. DEPAKOTE [Concomitant]
     Dosage: 500 MG 3 IN PM
     Route: 048
  5. DEPAKOTE [Concomitant]
     Indication: MIGRAINE
     Dosage: 500 MG 3 IN PM
     Route: 048
  6. DEPAKOTE [Concomitant]
     Dosage: IN AM
     Route: 048
  7. SYMBICORT [Concomitant]
     Indication: CHRONIC OBSTRUCTIVE PULMONARY DISEASE
     Route: 048
  8. ATROVENT [Concomitant]
     Indication: CHRONIC OBSTRUCTIVE PULMONARY DISEASE
     Route: 048
  9. SINGULAIR [Concomitant]
     Indication: CHRONIC OBSTRUCTIVE PULMONARY DISEASE
     Route: 048
  10. PREVACID [Concomitant]
     Indication: GASTRIC DISORDER
     Route: 048
  11. VENTOLIN [Concomitant]
     Indication: CHRONIC OBSTRUCTIVE PULMONARY DISEASE
     Route: 048
  12. PHENERGAN [Concomitant]
     Indication: NAUSEA
     Route: 048

REACTIONS (13)
  - BLOOD CALCIUM DECREASED [None]
  - BLOOD CHOLESTEROL INCREASED [None]
  - BODY HEIGHT DECREASED [None]
  - FIBROMYALGIA [None]
  - GASTRIC DISORDER [None]
  - GLAUCOMA [None]
  - HEADACHE [None]
  - INSOMNIA [None]
  - NEPHROLITHIASIS [None]
  - OSTEOPOROSIS [None]
  - SKIN CANCER [None]
  - VITAMIN D DEFICIENCY [None]
  - WEIGHT FLUCTUATION [None]
